FAERS Safety Report 5377468-X (Version None)
Quarter: 2007Q3

REPORT INFORMATION
  Report Type: 
  Country: None (occurrence: None)
  Receive Date: 20070703
  Receipt Date: 20070622
  Transmission Date: 20080115
  Serious: Yes (Other)
  Sender: FDA-Public Use
  Company Number: US-AMGEN-US230765

PATIENT
  Sex: Male

DRUGS (7)
  1. ARANESP [Suspect]
     Indication: RENAL FAILURE CHRONIC
  2. COUMADIN [Concomitant]
  3. LASIX [Concomitant]
  4. LABETALOL HCL [Concomitant]
  5. FLOMAX [Concomitant]
  6. PROSCAR [Concomitant]
  7. IRON [Concomitant]
     Dates: start: 20070601

REACTIONS (3)
  - HAEMOGLOBIN DECREASED [None]
  - PERICARDIAL EFFUSION [None]
  - PROTHROMBIN TIME PROLONGED [None]
